FAERS Safety Report 6680651-4 (Version None)
Quarter: 2010Q2

REPORT INFORMATION
  Report Type: 
  Country: None (occurrence: None)
  Receive Date: 20100414
  Receipt Date: 20100401
  Transmission Date: 20101027
  Serious: Yes (Other)
  Sender: FDA-Public Use
  Company Number: CA-PFIZER INC-2010042909

PATIENT
  Age: 17 Year
  Sex: Male

DRUGS (9)
  1. ZELDOX [Suspect]
     Indication: PSYCHOTIC DISORDER
     Dosage: 2 X 40 MG (VARYING DOSES)
     Route: 048
     Dates: start: 20100303, end: 20100328
  2. ZELDOX [Suspect]
     Indication: BIPOLAR I DISORDER
  3. OLANZAPINE [Concomitant]
     Dosage: 120 MG (2 X 60MG), UNK
  4. NICOTINE [Concomitant]
     Dosage: UNK
     Route: 062
  5. LOXAPINE [Concomitant]
     Dosage: UNK
  6. DIVALPROEX SODIUM [Concomitant]
     Dosage: UNK
  7. LORAZEPAM [Concomitant]
     Dosage: UNK
  8. CLONAZEPAM [Concomitant]
     Dosage: UNK
  9. QUETIAPINE [Concomitant]
     Dosage: UNK

REACTIONS (5)
  - AGITATION [None]
  - DEPRESSION [None]
  - PALPITATIONS [None]
  - PARANOIA [None]
  - SENSATION OF FOREIGN BODY [None]
